FAERS Safety Report 6044562-X (Version None)
Quarter: 2009Q1

REPORT INFORMATION
  Report Type: 
  Country: None (occurrence: None)
  Receive Date: 20090120
  Receipt Date: 20090112
  Transmission Date: 20090719
  Serious: Yes (Hospitalization)
  Sender: FDA-Public Use
  Company Number: US-BIOGENIDEC-2008BI027330

PATIENT
  Age: 65 Year
  Sex: Female
  Weight: 54 kg

DRUGS (3)
  1. AVONEX [Suspect]
     Indication: MULTIPLE SCLEROSIS
     Route: 030
     Dates: start: 19970101, end: 20030801
  2. AVONEX [Suspect]
     Route: 030
     Dates: start: 20030801, end: 20030801
  3. AVONEX [Suspect]
     Route: 030
     Dates: start: 20031101, end: 20081001

REACTIONS (5)
  - CEREBROVASCULAR ACCIDENT [None]
  - DYSPHAGIA [None]
  - INCOHERENT [None]
  - PYREXIA [None]
  - VOMITING [None]
